FAERS Safety Report 15696768 (Version 2)
Quarter: 2019Q2

REPORT INFORMATION
  Report Type: Spontaneous
  Country: US (occurrence: US)
  Receive Date: 20181206
  Receipt Date: 20190530
  Transmission Date: 20190711
  Serious: No
  Sender: FDA-Public Use
  Company Number: US-PFIZER INC-2018490165

PATIENT
  Age: 64 Year
  Sex: Female
  Weight: 67.57 kg

DRUGS (16)
  1. EUCRISA [Suspect]
     Active Substance: CRISABOROLE
     Indication: EXFOLIATIVE RASH
  2. CARBIDOPA/LEVODOPA [Concomitant]
     Indication: RESTLESS LEGS SYNDROME
     Dosage: 1 DF, TWICE DAILY
     Route: 048
     Dates: start: 2014
  3. CARBIDOPA/LEVODOPA [Concomitant]
     Dosage: UNK
     Dates: start: 2016
  4. ESCITALOPRAM [Concomitant]
     Active Substance: ESCITALOPRAM OXALATE
     Indication: DEPRESSION
     Dosage: 20 MG, ONCE DAILY (NIGHTLY)
     Route: 048
     Dates: start: 201803
  5. CLOBETASOL PROPION [Concomitant]
     Indication: RASH
     Dosage: UNK, AS NEEDED
     Dates: start: 2008
  6. EUCRISA [Suspect]
     Active Substance: CRISABOROLE
     Indication: EYELID RASH
     Dosage: UNK, 2X/DAY
     Dates: start: 201811
  7. DICLOFENAC SODIUM. [Concomitant]
     Active Substance: DICLOFENAC SODIUM
     Indication: BACK PAIN
     Dosage: 50 MG, ONCE DAILY (NIGHTLY)
     Route: 048
     Dates: start: 201706
  8. EUCRISA [Suspect]
     Active Substance: CRISABOROLE
     Indication: EYELIDS PRURITUS
     Dosage: UNK, ONCE DAILY (AT NIGHT)
     Route: 061
     Dates: start: 201811
  9. CLOBETASOL PROPION [Concomitant]
     Dosage: UNK
     Dates: start: 2010
  10. LYRICA [Concomitant]
     Active Substance: PREGABALIN
     Indication: RESTLESS LEGS SYNDROME
     Dosage: 100 MG, TWICE DAILY
     Route: 048
     Dates: start: 201706
  11. LOSARTAN. [Concomitant]
     Active Substance: LOSARTAN
     Indication: HYPERTENSION
     Dosage: 100 MG, ONCE DAILY (NIGHTLY)
     Route: 048
     Dates: start: 2011
  12. LOSARTAN. [Concomitant]
     Active Substance: LOSARTAN
     Dosage: UNK
     Dates: start: 2002
  13. BISOPROLOL FUMARATE. [Concomitant]
     Active Substance: BISOPROLOL FUMARATE
     Indication: HEART RATE INCREASED
     Dosage: 5 MG, ONCE DAILY (NIGHT)
     Route: 048
     Dates: start: 2013
  14. BISOPROLOL FUMARATE. [Concomitant]
     Active Substance: BISOPROLOL FUMARATE
     Dosage: UNK
     Dates: start: 2004
  15. SYNTHROID [Concomitant]
     Active Substance: LEVOTHYROXINE SODIUM
     Indication: HYPOTHYROIDISM
     Dosage: 88 UG, ONCE DAILY (EVERY MORNING)
     Route: 048
     Dates: start: 2000
  16. LYRICA [Concomitant]
     Active Substance: PREGABALIN
     Dosage: UNK
     Dates: start: 2016

REACTIONS (4)
  - Swelling of eyelid [Recovering/Resolving]
  - Off label use [Unknown]
  - Eyelid irritation [Recovering/Resolving]
  - Product use in unapproved indication [Unknown]

NARRATIVE: CASE EVENT DATE: 201811
